FAERS Safety Report 5145764-7 (Version None)
Quarter: 2006Q4

REPORT INFORMATION
  Report Type: 
  Country: None (occurrence: None)
  Receive Date: 20061102
  Receipt Date: 20061020
  Transmission Date: 20070319
  Serious: Yes (Life-Threatening)
  Sender: FDA-Public Use
  Company Number: 2006129594

PATIENT
  Age: 75 Year
  Sex: Female

DRUGS (1)
  1. LYRICA [Suspect]
     Dosage: 600 MG (150 MG, 4 IN 1 D), ORAL
     Route: 048
     Dates: start: 20060907, end: 20060908

REACTIONS (2)
  - ANGIONEUROTIC OEDEMA [None]
  - ASTHMA [None]
